FAERS Safety Report 14293000 (Version 1)
Quarter: 2017Q4

REPORT INFORMATION
  Report Type: Not Available
  Country: US (occurrence: US)
  Receive Date: 20171215
  Receipt Date: 20171215
  Transmission Date: 20180321
  Serious: Yes (Other)
  Sender: FDA-Public Use
  Company Number: US-FOUNDATIONCONSUMERHC-2017-US-014804

PATIENT
  Age: 38 Year
  Sex: Female
  Weight: 73.48 kg

DRUGS (2)
  1. DOXYCYCLINE. [Suspect]
     Active Substance: DOXYCYCLINE
     Dosage: UNK
     Route: 048
  2. TAKE ACTION [Suspect]
     Active Substance: LEVONORGESTREL
     Dosage: 1 PILL PO X 2 DOSES
     Route: 048
     Dates: start: 20171120, end: 20171124

REACTIONS (10)
  - Menstrual disorder [Recovered/Resolved]
  - Breast tenderness [Unknown]
  - Intentional product misuse [Unknown]
  - Rash [Unknown]
  - Herpes zoster [Unknown]
  - Dysmenorrhoea [Unknown]
  - Blister [Unknown]
  - Menstrual disorder [Recovered/Resolved]
  - Breast discomfort [Unknown]
  - Menorrhagia [Recovered/Resolved]

NARRATIVE: CASE EVENT DATE: 201711
